FAERS Safety Report 10365268 (Version 2)
Quarter: 2014Q3

REPORT INFORMATION
  Report Type: Spontaneous
  Country: CN (occurrence: CN)
  Receive Date: 20140806
  Receipt Date: 20140808
  Transmission Date: 20150326
  Serious: Yes (Other)
  Sender: FDA-Public Use
  Company Number: CN-PFIZER INC-2014215404

PATIENT
  Age: 83 Year
  Sex: Male

DRUGS (3)
  1. IMIPENEM [Concomitant]
     Active Substance: IMIPENEM
     Indication: ASPERGILLUS INFECTION
  2. VFEND [Suspect]
     Active Substance: VORICONAZOLE
     Indication: ASPERGILLUS INFECTION
     Dosage: 0.4 G
     Route: 041
     Dates: start: 20140723, end: 20140724
  3. METHYLPREDNISOLONE [Concomitant]
     Active Substance: METHYLPREDNISOLONE
     Indication: ASPERGILLUS INFECTION

REACTIONS (4)
  - Haemoptysis [Unknown]
  - Dyspnoea [Unknown]
  - Pyrexia [Unknown]
  - Condition aggravated [Unknown]

NARRATIVE: CASE EVENT DATE: 20140724
